FAERS Safety Report 5850396-9 (Version None)
Quarter: 2008Q3

REPORT INFORMATION
  Report Type: 
  Country: None (occurrence: None)
  Receive Date: 20080818
  Receipt Date: 20080804
  Transmission Date: 20090109
  Serious: No
  Sender: FDA-Public Use
  Company Number: 230103K07USA

PATIENT
  Age: 42 Year
  Sex: Male
  Weight: 98.8842 kg

DRUGS (3)
  1. REBIF [Suspect]
     Indication: MULTIPLE SCLEROSIS
     Dosage: 44 MCG, 3 IN 1 WEEKS, SUBCUTANEOUS
     Route: 058
     Dates: start: 20051223
  2. NAPROXEN [Concomitant]
     Indication: MULTIPLE SCLEROSIS
     Dosage: 2 IN 1 DAYS
     Dates: start: 20051223
  3. NAPROXEN [Concomitant]
     Indication: PREMEDICATION
     Dosage: 2 IN 1 DAYS
     Dates: start: 20051223

REACTIONS (1)
  - NO ADVERSE EVENT [None]
